FAERS Safety Report 13390468 (Version 1)
Quarter: 2017Q1

REPORT INFORMATION
  Report Type: Spontaneous
  Country: US (occurrence: US)
  Receive Date: 20170331
  Receipt Date: 20170331
  Transmission Date: 20170429
  Serious: No
  Sender: FDA-Public Use
  Company Number: US-PFIZER INC-2017138260

PATIENT
  Age: 69 Year
  Sex: Female

DRUGS (1)
  1. XELJANZ [Suspect]
     Active Substance: TOFACITINIB CITRATE
     Dosage: 5 MG, UNK
     Dates: start: 20170320

REACTIONS (5)
  - Blood pressure increased [Unknown]
  - Urinary incontinence [Unknown]
  - Headache [Unknown]
  - Vision blurred [Unknown]
  - Chest pain [Unknown]

NARRATIVE: CASE EVENT DATE: 20170328
